FAERS Safety Report 24063631 (Version 3)
Quarter: 2024Q3

REPORT INFORMATION
  Report Type: Spontaneous
  Country: CA (occurrence: CA)
  Receive Date: 20240709
  Receipt Date: 20240806
  Transmission Date: 20241016
  Serious: Yes (Other)
  Sender: TAKEDA
  Company Number: CA-TAKEDA-2024TUS068260

PATIENT
  Age: 75 Year

DRUGS (2)
  1. PRUCALOPRIDE SUCCINATE [Suspect]
     Active Substance: PRUCALOPRIDE SUCCINATE
     Indication: Multiple sclerosis
     Dosage: 1 MILLIGRAM, QD
     Route: 065
  2. PRUCALOPRIDE SUCCINATE [Suspect]
     Active Substance: PRUCALOPRIDE SUCCINATE
     Dosage: 2 MILLIGRAM, QD
     Route: 065

REACTIONS (4)
  - Impaired gastric emptying [Unknown]
  - Constipation [Unknown]
  - Discomfort [Unknown]
  - Product use in unapproved indication [Unknown]
